FAERS Safety Report 5117802-9 (Version None)
Quarter: 2006Q3

REPORT INFORMATION
  Report Type: 
  Country: None (occurrence: None)
  Receive Date: 20060929
  Receipt Date: 20060920
  Transmission Date: 20061208
  Serious: Yes (Other)
  Sender: FDA-Public Use
  Company Number: 2006AC01759

PATIENT
  Age: 27 Year
  Sex: Male

DRUGS (10)
  1. LIDOCAINE [Suspect]
     Indication: ANAESTHESIA
     Dosage: DURING INCISION AND DRAINAGE OF RIGHT THIGH
     Route: 007
  2. LIDOCAINE [Suspect]
     Indication: NERVE BLOCK
     Dosage: DURING INCISION AND DRAINAGE OF RIGHT THIGH
     Route: 007
  3. LIDOCAINE [Suspect]
     Dosage: 2ND WASHOUT AND DEBRIDEMENT
  4. LIDOCAINE [Suspect]
     Dosage: 2ND WASHOUT AND DEBRIDEMENT
  5. LIDOCAINE [Suspect]
     Indication: INTUBATION
  6. CETACAINE [Suspect]
     Indication: NERVE BLOCK
     Dosage: 14% BENZOCAINE, 2% BUTAMBEN, 2% TETRACYCLINE HCL
     Route: 049
  7. CETACAINE [Suspect]
     Indication: INTUBATION
     Dosage: 14% BENZOCAINE, 2% BUTAMBEN, 2% TETRACYCLINE HCL
     Route: 049
  8. CETACAINE [Suspect]
     Dosage: 14% BENZOCAINE, 2% BUTAMBEN, 2% TETRACYCLINE HCL
     Route: 049
  9. CETACAINE [Suspect]
     Dosage: 14% BENZOCAINE, 2% BUTAMBEN, 2% TETRACYCLINE HCL
     Route: 049
  10. OXYGEN [Concomitant]
     Indication: LIFE SUPPORT
     Route: 055

REACTIONS (2)
  - LOCALISED INFECTION [None]
  - METHAEMOGLOBINAEMIA [None]
